FAERS Safety Report 7366415-7 (Version None)
Quarter: 2011Q1

REPORT INFORMATION
  Report Type: 
  Country: None (occurrence: None)
  Receive Date: 20110322
  Receipt Date: 20110308
  Transmission Date: 20110831
  Serious: Yes (Hospitalization)
  Sender: FDA-Public Use
  Company Number: US-JNJFOC-20090707675

PATIENT
  Sex: Female
  Weight: 50.5 kg

DRUGS (5)
  1. REMICADE [Suspect]
     Route: 042
  2. CIPRO [Concomitant]
  3. CEFOXITIN [Concomitant]
  4. REMICADE [Suspect]
     Indication: INFLAMMATORY BOWEL DISEASE
     Dosage: TOTAL 7 DOSES
     Route: 042
  5. METRONIDAZOLE [Concomitant]

REACTIONS (3)
  - POST PROCEDURAL COMPLICATION [None]
  - ILEOSTOMY CLOSURE [None]
  - PELVIC ABSCESS [None]
